FAERS Safety Report 7603791-1 (Version None)
Quarter: 2011Q3

REPORT INFORMATION
  Report Type: 
  Country: None (occurrence: None)
  Receive Date: 20110712
  Receipt Date: 20110705
  Transmission Date: 20111222
  Serious: Yes (Other)
  Sender: FDA-Public Use
  Company Number: US-VIIV HEALTHCARE LIMITED-A0935373A

PATIENT
  Age: 7 Year
  Sex: Male

DRUGS (8)
  1. EPIVIR [Suspect]
     Indication: HIV INFECTION
     Dosage: 10ML TWICE PER DAY
     Route: 048
     Dates: start: 20061221
  2. STAVUDINE [Suspect]
     Indication: HIV INFECTION
     Dosage: 19MG TWICE PER DAY
     Route: 048
     Dates: start: 20061221, end: 20090729
  3. ATAZANAVIR [Suspect]
     Indication: HIV INFECTION
     Dosage: 250MG PER DAY
     Route: 048
     Dates: start: 20061221
  4. IBRUPROFEN [Concomitant]
     Dates: start: 20090729
  5. ZIDOVUDINE [Suspect]
     Indication: HIV INFECTION
     Dosage: 200MG TWICE PER DAY
     Route: 048
     Dates: start: 20090729
  6. MULTI-VITAMIN [Concomitant]
     Dates: start: 20051231
  7. RITONAVIR [Suspect]
     Indication: HIV INFECTION
     Dosage: 100MG PER DAY
     Route: 048
     Dates: start: 20061221
  8. AUGMENTIN '125' [Concomitant]
     Dates: start: 20090729

REACTIONS (1)
  - FACIAL WASTING [None]
